FAERS Safety Report 4342543-5 (Version None)
Quarter: 2004Q1

REPORT INFORMATION
  Report Type: 
  Country: None (occurrence: None)
  Receive Date: 20040213
  Receipt Date: 20031222
  Transmission Date: 20041129
  Serious: Yes (Other)
  Sender: FDA-Public Use
  Company Number: 355236

PATIENT
  Age: 53 Year
  Sex: Female

DRUGS (2)
  1. PEGASYS [Suspect]
     Dosage: SUBCUTANEOUS
     Route: 058
     Dates: start: 20031208
  2. COPEGUS [Suspect]
     Dosage: ORAL
     Route: 048
     Dates: start: 20031208

REACTIONS (3)
  - CHEST DISCOMFORT [None]
  - COUGH [None]
  - PLATELET COUNT DECREASED [None]
